FAERS Safety Report 8275169-1 (Version None)
Quarter: 2012Q2

REPORT INFORMATION
  Report Type: 
  Country: None (occurrence: None)
  Receive Date: 20120411
  Receipt Date: 20120405
  Transmission Date: 20120825
  Serious: Yes (Other)
  Sender: FDA-Public Use
  Company Number: PHHY2012US029681

PATIENT
  Age: 69 Year
  Sex: Male

DRUGS (4)
  1. ZOLPIDEM [Suspect]
     Indication: MUSCULOSKELETAL PAIN
     Dosage: 30 TO 40 MG, UNK
  2. DULOXETINE HYDROCHLORIDE [Concomitant]
     Dosage: 60 MG, PER DAY
  3. HALOPERIDOL DECANOATE [Concomitant]
     Dosage: 1000 MG, EVERY MONTH
     Route: 042
  4. NAPROXEN [Concomitant]
     Indication: PAIN

REACTIONS (9)
  - DISTURBANCE IN ATTENTION [None]
  - DRUG ABUSE [None]
  - DELUSION [None]
  - ALTERED STATE OF CONSCIOUSNESS [None]
  - DELIRIUM [None]
  - LOSS OF CONSCIOUSNESS [None]
  - LOOSE ASSOCIATIONS [None]
  - TOXICITY TO VARIOUS AGENTS [None]
  - ILLUSION [None]
